FAERS Safety Report 7199826-3 (Version None)
Quarter: 2010Q4

REPORT INFORMATION
  Report Type: 
  Country: None (occurrence: None)
  Receive Date: 20101228
  Receipt Date: 20101222
  Transmission Date: 20110411
  Serious: Yes (Hospitalization)
  Sender: FDA-Public Use
  Company Number: DE-ROCHE-749682

PATIENT
  Sex: Female
  Weight: 69 kg

DRUGS (3)
  1. CAPECITABINE [Suspect]
     Dosage: TEMPORARILY INTERRUPTED 15 DECEMBER 2010.
     Route: 048
     Dates: start: 20101203, end: 20101215
  2. BEVACIZUMAB [Suspect]
     Dosage: DATE OF LAST DOSE PRIOR TO SAE: 03 DECEMBER 2010.
     Route: 042
     Dates: start: 20101203
  3. DOCETAXEL [Suspect]
     Dosage: DATE OF LAST DOSE PRIOR TO SAE: 03 DECEMBER 2010.
     Route: 042
     Dates: start: 20101203

REACTIONS (4)
  - HYPOPHAGIA [None]
  - MUCOSAL INFLAMMATION [None]
  - OESOPHAGEAL PAIN [None]
  - ORAL PAIN [None]
